FAERS Safety Report 22383407 (Version 1)
Quarter: 2023Q2

REPORT INFORMATION
  Report Type: Spontaneous
  Country: US (occurrence: US)
  Receive Date: 20230530
  Receipt Date: 20230530
  Transmission Date: 20230721
  Serious: No
  Sender: FDA-Public Use
  Company Number: US-SANOFI-01630730

PATIENT
  Age: 64 Year
  Sex: Female

DRUGS (1)
  1. LOVENOX [Suspect]
     Active Substance: ENOXAPARIN SODIUM
     Indication: Postoperative care
     Dosage: UNK

REACTIONS (2)
  - Hypoaesthesia [Unknown]
  - Lack of administration site rotation [Unknown]
